FAERS Safety Report 10040010 (Version 2)
Quarter: 2014Q1

REPORT INFORMATION
  Report Type: Spontaneous
  Country: US (occurrence: US)
  Receive Date: 20140326
  Receipt Date: 20140326
  Transmission Date: 20141002
  Serious: Yes (Other)
  Sender: FDA-Public Use
  Company Number: US-JNJCP-30000211498

PATIENT
  Age: 22 Year
  Sex: Female
  Weight: 57 kg

DRUGS (1)
  1. NEUTROGENA ON THE-SPOT ACNE TREATMENT  VANISHING [Suspect]
     Indication: ACNE
     Dosage: SMALL AMOUNT FIVE TO SEVEN SPOTS AS PER RECOMMENDED DOSAGE AND APPLICATION PROCEDURES
     Route: 061
     Dates: start: 20081101, end: 20081101

REACTIONS (3)
  - Pharyngeal oedema [Unknown]
  - Swollen tongue [Unknown]
  - Drug hypersensitivity [Unknown]
